FAERS Safety Report 7949278-8 (Version None)
Quarter: 2011Q4

REPORT INFORMATION
  Report Type: 
  Country: None (occurrence: None)
  Receive Date: 20111129
  Receipt Date: 20111129
  Transmission Date: 20120403
  Serious: No
  Sender: FDA-Public Use
  Company Number: None

PATIENT
  Age: 58 Year
  Sex: Male
  Weight: 106.8 kg

DRUGS (4)
  1. SILDENAFIL [Suspect]
     Indication: ERECTILE DYSFUNCTION
     Dosage: ONE BY WEEKLY SUBLINGUAL
     Route: 060
     Dates: start: 20111115
  2. SILDENAFIL [Suspect]
     Indication: ERECTILE DYSFUNCTION
     Dosage: ONE BY WEEKLY SUBLINGUAL
     Route: 060
     Dates: start: 20111122
  3. SILDENAFIL [Suspect]
     Indication: ERECTILE DYSFUNCTION
     Dosage: ONE BY WEEKLY SUBLINGUAL
     Route: 060
     Dates: start: 20111112
  4. SILDENAFIL [Suspect]
     Indication: ERECTILE DYSFUNCTION
     Dosage: ONE BY WEEKLY SUBLINGUAL
     Route: 060
     Dates: start: 20111118

REACTIONS (2)
  - TREATMENT FAILURE [None]
  - THERAPEUTIC PRODUCT INEFFECTIVE [None]
